FAERS Safety Report 16849566 (Version 1)
Quarter: 2019Q4

REPORT INFORMATION
  Report Type: Spontaneous
  Country: US (occurrence: US)
  Receive Date: 20190925
  Receipt Date: 20190925
  Transmission Date: 20200122
  Serious: Yes (Other)
  Sender: FDA-Public Use
  Company Number: None

PATIENT
  Age: 57 Year
  Sex: Female
  Weight: 78.75 kg

DRUGS (10)
  1. PROBIOTICS [Concomitant]
     Active Substance: PROBIOTICS NOS
  2. SERTRALINE [Concomitant]
     Active Substance: SERTRALINE HYDROCHLORIDE
  3. CEFUROXIME. [Suspect]
     Active Substance: CEFUROXIME
     Indication: SINUSITIS
     Dosage: ?          QUANTITY:1 TABLET(S);?
     Route: 048
     Dates: start: 20190918, end: 20190925
  4. IBUPROFEN. [Concomitant]
     Active Substance: IBUPROFEN
  5. TRAZODONE [Concomitant]
     Active Substance: TRAZODONE HYDROCHLORIDE
  6. MULTI VITAMIN FOR DIABETICS [Concomitant]
  7. LANTUS [Concomitant]
     Active Substance: INSULIN GLARGINE
  8. SYNTHROID [Concomitant]
     Active Substance: LEVOTHYROXINE SODIUM
  9. HUMALOG [Concomitant]
     Active Substance: INSULIN LISPRO
  10. CLONEZEPAM [Concomitant]

REACTIONS (5)
  - Urticaria [None]
  - Chest discomfort [None]
  - Anaphylactic reaction [None]
  - Dysuria [None]
  - Nausea [None]

NARRATIVE: CASE EVENT DATE: 20190925
